FAERS Safety Report 15314466 (Version 2)
Quarter: 2018Q3

REPORT INFORMATION
  Report Type: Report from Study
  Country: None (occurrence: CA)
  Receive Date: 20180824
  Receipt Date: 20180915
  Transmission Date: 20181010
  Serious: Yes (Hospitalization)
  Sender: FDA-Public Use
  Company Number: CA-ABBVIE-18K-028-2460256-00

PATIENT
  Age: 55 Year
  Sex: Female

DRUGS (1)
  1. HUMIRA [Suspect]
     Active Substance: ADALIMUMAB
     Indication: PSORIASIS
     Route: 058
     Dates: start: 20180817, end: 2018

REACTIONS (6)
  - Dysphonia [Not Recovered/Not Resolved]
  - Blood pressure abnormal [Recovered/Resolved]
  - Erythema [Recovering/Resolving]
  - Pharyngeal paraesthesia [Recovering/Resolving]
  - Heart rate increased [Recovered/Resolved]
  - Paraesthesia oral [Recovering/Resolving]

NARRATIVE: CASE EVENT DATE: 201808
